FAERS Safety Report 18421163 (Version 1)
Quarter: 2020Q4

REPORT INFORMATION
  Report Type: Spontaneous
  Country: BR (occurrence: BR)
  Receive Date: 20201023
  Receipt Date: 20201023
  Transmission Date: 20210114
  Serious: Yes (Other)
  Sender: FDA-Public Use
  Company Number: BR-009507513-2010BRA008666

PATIENT
  Age: 32 Year
  Sex: Female
  Weight: 73 kg

DRUGS (5)
  1. IMPLANON NXT [Suspect]
     Active Substance: ETONOGESTREL
     Indication: OESTROGEN DEFICIENCY
     Dosage: 1 IMPLANT
     Route: 059
     Dates: start: 20200629
  2. IMPLANON NXT [Suspect]
     Active Substance: ETONOGESTREL
     Indication: ANTIPHOSPHOLIPID SYNDROME
  3. AZATHIOPRINE. [Concomitant]
     Active Substance: AZATHIOPRINE
     Dosage: UNK
  4. ASPIRIN. [Concomitant]
     Active Substance: ASPIRIN
     Dosage: UNK
  5. HYDROXYCHLOROQUINE SULFATE. [Concomitant]
     Active Substance: HYDROXYCHLOROQUINE SULFATE
     Dosage: UNK

REACTIONS (7)
  - Uterine disorder [Not Recovered/Not Resolved]
  - Vaginal polyp [Unknown]
  - Metrorrhagia [Not Recovered/Not Resolved]
  - Product use in unapproved indication [Unknown]
  - Drug intolerance [Unknown]
  - Dermatitis diaper [Not Recovered/Not Resolved]
  - Product prescribing issue [Unknown]

NARRATIVE: CASE EVENT DATE: 2020
